FAERS Safety Report 10385452 (Version 1)
Quarter: 2014Q3

REPORT INFORMATION
  Report Type: Spontaneous
  Country: US (occurrence: None)
  Receive Date: 20140808
  Receipt Date: 20140808
  Transmission Date: 20150326
  Serious: Yes (Hospitalization, Other)
  Sender: FDA-Public Use
  Company Number: 2007S1005438

PATIENT
  Age: 65 Year
  Sex: Female

DRUGS (8)
  1. PREMARIN (ESTROGENS CONJUGATED) [Concomitant]
  2. PROZAC [Concomitant]
     Active Substance: FLUOXETINE HYDROCHLORIDE
  3. NARDIL [Concomitant]
     Active Substance: PHENELZINE SULFATE
  4. ESTROGEN (ESTRADIOL) [Concomitant]
  5. PHOSPHO-SODA [Suspect]
     Active Substance: SODIUM PHOSPHATE, DIBASIC\SODIUM PHOSPHATE, MONOBASIC
     Indication: COLONOSCOPY
     Route: 048
     Dates: start: 20000403
  6. IMIPRAMINE (IMIPRAMINE) (IMIPRAMINE) [Concomitant]
     Active Substance: IMIPRAMINE
  7. XANAX [Concomitant]
     Active Substance: ALPRAZOLAM
  8. CARDURA [Concomitant]
     Active Substance: DOXAZOSIN MESYLATE

REACTIONS (46)
  - Hyperhidrosis [None]
  - Sinusitis bacterial [None]
  - Weight decreased [None]
  - Oral disorder [None]
  - Aphthous stomatitis [None]
  - Renal tubular necrosis [None]
  - Urinary tract infection [None]
  - Dizziness [None]
  - Presyncope [None]
  - Breast tenderness [None]
  - Cataract operation [None]
  - Renal failure chronic [None]
  - Clostridium difficile infection [None]
  - Ecchymosis [None]
  - Anogenital dysplasia [None]
  - Vomiting [None]
  - Cystitis [None]
  - Renal failure acute [None]
  - Haemodialysis [None]
  - Renal transplant [None]
  - Insomnia [None]
  - Hypomagnesaemia [None]
  - Orthostatic hypotension [None]
  - Headache [None]
  - Sinus congestion [None]
  - Stomatitis [None]
  - Vaginal prolapse [None]
  - Nausea [None]
  - Anaemia [None]
  - Hypotension [None]
  - Oropharyngeal pain [None]
  - Pollakiuria [None]
  - Ear pain [None]
  - Depression [None]
  - Diarrhoea [None]
  - Cardiac failure congestive [None]
  - Ligament sprain [None]
  - Hyponatraemia [None]
  - Hypothyroidism [None]
  - Productive cough [None]
  - Toxicity to various agents [None]
  - Panic disorder [None]
  - Hypertension [None]
  - Myalgia [None]
  - Rectocele [None]
  - Urinary retention [None]

NARRATIVE: CASE EVENT DATE: 20000526
